FAERS Safety Report 4686630-0 (Version None)
Quarter: 2005Q2

REPORT INFORMATION
  Report Type: 
  Country: None (occurrence: None)
  Receive Date: 20050606
  Receipt Date: 20050523
  Transmission Date: 20051028
  Serious: Yes (Hospitalization, Other)
  Sender: FDA-Public Use
  Company Number: 2005BI008546

PATIENT
  Sex: Female

DRUGS (1)
  1. AVONEX [Suspect]
     Indication: MULTIPLE SCLEROSIS
     Dosage: 30 UG QW IM
     Route: 030
     Dates: start: 20011001

REACTIONS (8)
  - ANEURYSM [None]
  - COMMUNICATION DISORDER [None]
  - DEPRESSION [None]
  - INTENTIONAL MISUSE [None]
  - OVERDOSE [None]
  - PROCEDURAL COMPLICATION [None]
  - SUBDURAL EMPYEMA [None]
  - SUICIDE ATTEMPT [None]
